FAERS Safety Report 8559552-2 (Version None)
Quarter: 2012Q2

REPORT INFORMATION
  Report Type: 
  Country: None (occurrence: None)
  Receive Date: 20120418
  Receipt Date: 20111006
  Transmission Date: 20120825
  Serious: Yes (Hospitalization)
  Sender: FDA-Public Use
  Company Number: PIR#CC400116128

PATIENT
  Age: 9 Year
  Sex: Female

DRUGS (1)
  1. SODIUM CHLORIDE 0.9% [Suspect]

REACTIONS (1)
  - INJECTION SITE URTICARIA [None]
